FAERS Safety Report 25931553 (Version 3)
Quarter: 2025Q4

REPORT INFORMATION
  Report Type: Spontaneous
  Country: JP (occurrence: JP)
  Receive Date: 20251016
  Receipt Date: 20251028
  Transmission Date: 20260118
  Serious: Yes (Hospitalization)
  Sender: PFIZER
  Company Number: JP-MLMSERVICE-20251006-PI669697-00272-1

PATIENT
  Age: 48 Year
  Sex: Female
  Weight: 52.6 kg

DRUGS (4)
  1. ESTROGENS, CONJUGATED [Suspect]
     Active Substance: ESTROGENS, CONJUGATED
     Indication: Turner^s syndrome
     Dosage: UNK
     Route: 048
  2. ESTROGENS, CONJUGATED [Suspect]
     Active Substance: ESTROGENS, CONJUGATED
     Indication: Hormone replacement therapy
  3. DYDROGESTERONE [Suspect]
     Active Substance: DYDROGESTERONE
     Indication: Turner^s syndrome
     Dosage: UNK
     Route: 048
  4. DYDROGESTERONE [Suspect]
     Active Substance: DYDROGESTERONE
     Indication: Hormone replacement therapy

REACTIONS (3)
  - Lung opacity [Recovering/Resolving]
  - Uterine polyp [Unknown]
  - Off label use [Unknown]
